FAERS Safety Report 7156653-0 (Version None)
Quarter: 2010Q4

REPORT INFORMATION
  Report Type: 
  Country: None (occurrence: None)
  Receive Date: 20101214
  Receipt Date: 20101011
  Transmission Date: 20110411
  Serious: No
  Sender: FDA-Public Use
  Company Number: US-ASTRAZENECA-2004UW21305

PATIENT
  Age: 38 Year
  Sex: Female
  Weight: 66.2 kg

DRUGS (6)
  1. CRESTOR [Suspect]
     Indication: HYPERCHOLESTEROLAEMIA
     Route: 048
     Dates: start: 20040923
  2. ALEVE (CAPLET) [Concomitant]
  3. KLONOPIN [Concomitant]
  4. ASPIRIN [Concomitant]
  5. POTASSIUM CITRATE [Concomitant]
  6. TRILEPTAL [Concomitant]

REACTIONS (5)
  - BACK PAIN [None]
  - CONSTIPATION [None]
  - FAECES DISCOLOURED [None]
  - HEPATIC MASS [None]
  - PANCREATIC NEOPLASM [None]
